FAERS Safety Report 5676740-3 (Version None)
Quarter: 2008Q2

REPORT INFORMATION
  Report Type: 
  Country: None (occurrence: None)
  Receive Date: 20080311
  Receipt Date: 20080128
  Transmission Date: 20081010
  Serious: No
  Sender: FDA-Public Use
  Company Number: 002#2#2007-00417

PATIENT
  Age: 27 Year
  Sex: Male
  Weight: 102.0593 kg

DRUGS (2)
  1. NEUPRO [Suspect]
     Indication: RESTLESS LEGS SYNDROME
     Dosage: 2MG/24H,1 IN 1 D,TRANSDERMAL
     Route: 062
     Dates: start: 20070803
  2. REQUIP [Concomitant]

REACTIONS (3)
  - DRUG INEFFECTIVE [None]
  - INTENTIONAL DRUG MISUSE [None]
  - PAIN IN EXTREMITY [None]
